FAERS Safety Report 8088260 (Version 4)
Quarter: 2013Q4

REPORT INFORMATION
  Report Type: Spontaneous
  Country: US (occurrence: US)
  Receive Date: 20110812
  Receipt Date: 20131030
  Transmission Date: 20140711
  Serious: Yes (Other)
  Sender: FDA-Public Use
  Company Number: US-ROCHE-796006

PATIENT
  Age: 24 Year
  Sex: Female
  Weight: 62.65 kg

DRUGS (4)
  1. ACCUTANE [Suspect]
     Indication: ACNE
     Route: 065
     Dates: start: 20001201, end: 200106
  2. ACCUTANE [Suspect]
     Route: 065
  3. TYLENOL [Concomitant]
  4. ALEVE [Concomitant]

REACTIONS (8)
  - Colitis ulcerative [Unknown]
  - Inflammatory bowel disease [Unknown]
  - Depression [Unknown]
  - Injury [Unknown]
  - Large intestine polyp [Unknown]
  - Lip dry [Unknown]
  - Nasal dryness [Unknown]
  - Dry skin [Unknown]
